FAERS Safety Report 9671694 (Version 5)
Quarter: 2014Q1

REPORT INFORMATION
  Report Type: Spontaneous
  Country: IE (occurrence: None)
  Receive Date: 20131104
  Receipt Date: 20140109
  Transmission Date: 20141002
  Serious: Yes (Life-Threatening, Hospitalization)
  Sender: FDA-Public Use
  Company Number: SYM-2013-12295

PATIENT
  Age: 60 Year
  Sex: Male

DRUGS (8)
  1. 5 FU [Suspect]
     Indication: COLORECTAL CANCER METASTATIC
     Route: 041
     Dates: start: 20130826, end: 20130826
  2. AFLIBERCEPT [Suspect]
     Indication: COLORECTAL CANCER METASTATIC
     Route: 041
     Dates: start: 20130826, end: 20130826
  3. IRINOTECAN [Suspect]
     Indication: COLORECTAL CANCER METASTATIC
     Route: 041
     Dates: start: 20130826, end: 20130826
  4. LEUCOVORIN (FOLINIC ACID) (SOLUTION FOR INFUSION) (FOLINIC ACID) [Suspect]
     Indication: COLORECTAL CANCER METASTATIC
     Route: 041
     Dates: start: 20130826, end: 20130826
  5. LOPERAMIDE [Concomitant]
  6. OPIOIDS [Concomitant]
  7. CORTICOSTEROIDS [Concomitant]
  8. CALCIUM CHANNEL BLOCKERS [Concomitant]

REACTIONS (5)
  - Proctalgia [None]
  - Rectal haemorrhage [None]
  - Anastomotic complication [None]
  - Rectal perforation [None]
  - Pulmonary embolism [None]
